FAERS Safety Report 8011525 (Version 3)
Quarter: 2012Q4

REPORT INFORMATION
  Report Type: Report from Study
  Country: US (occurrence: US)
  Receive Date: 20110627
  Receipt Date: 20120917
  Transmission Date: 20130627
  Serious: Yes (Hospitalization)
  Sender: FDA-Public Use
  Company Number: US-UCBSA-035386

PATIENT
  Age: 28 Year
  Sex: Female
  Weight: 73.02 kg

DRUGS (25)
  1. CIMZIA [Suspect]
     Indication: CROHN^S DISEASE
     Route: 058
     Dates: start: 20090306, end: 20100524
  2. CIMZIA [Suspect]
     Indication: CROHN^S DISEASE
     Route: 058
     Dates: end: 2010
  3. RIFAXIMIN [Concomitant]
     Indication: CROHN^S DISEASE
     Dates: start: 20090612, end: 20090730
  4. RIFAXIMIN [Concomitant]
     Indication: CROHN^S DISEASE
     Dates: start: 20091110, end: 20091116
  5. RIFAXIMIN [Concomitant]
     Indication: CROHN^S DISEASE
     Dates: start: 20100930, end: 20101001
  6. FLAGYL [Concomitant]
     Indication: CROHN^S DISEASE
     Dates: start: 20090313, end: 20090314
  7. FLAGYL [Concomitant]
     Indication: CROHN^S DISEASE
     Dates: start: 20090323, end: 20090612
  8. FLAGYL [Concomitant]
     Indication: CROHN^S DISEASE
     Dates: start: 20100930, end: 20101001
  9. VANCOMYCIN [Concomitant]
     Indication: CROHN^S DISEASE
     Dates: start: 20090312, end: 20101001
  10. CIPRO [Concomitant]
     Indication: CROHN^S DISEASE
     Dates: start: 2004
  11. TYLENOL EXTRA STRENGTH [Concomitant]
     Dosage: 500 MG, 1 TABLET EVERY 4 HOURS AS NEEDED
     Route: 048
  12. VALIUM [Concomitant]
     Dosage: PRN
  13. CYANOCOBALAMIN [Concomitant]
     Dosage: 1000 MCG/MCL
     Route: 030
  14. VASOTEC [Concomitant]
  15. VITAMIN D [Concomitant]
  16. VITAMIN D [Concomitant]
     Dosage: 50000 UNIT, 1 CAPS DAILY
     Route: 048
  17. VITAMIN D [Concomitant]
     Dosage: 1000 UNIT
  18. VICODIN OR LORTAB [Concomitant]
     Dosage: HYDROCODONE/ACETAMINOPHEN:5-500 MG, EVERY 4 HOURS
     Route: 048
  19. MULTIVITAMIN [Concomitant]
     Dosage: 1 TAB DAILY
     Route: 048
  20. PROBIOTIC PO [Concomitant]
     Route: 048
  21. PROBIOTIC PO [Concomitant]
     Dosage: 2 CAPS BY MOUTH DAILY
     Route: 048
  22. POTASSIUM CHLORIDE [Concomitant]
     Route: 048
  23. AMBIEN [Concomitant]
     Dosage: 10 MG, NIGHTLY
     Route: 048
  24. DELTASONE [Concomitant]
     Indication: CROHN^S DISEASE
     Route: 048
     Dates: start: 1999, end: 20101210
  25. DELTASONE [Concomitant]
     Indication: CROHN^S DISEASE
     Route: 048

REACTIONS (1)
  - Congestive cardiomyopathy [Recovered/Resolved]
